FAERS Safety Report 20561574 (Version 1)
Quarter: 2022Q1

REPORT INFORMATION
  Report Type: Spontaneous
  Country: HK (occurrence: HK)
  Receive Date: 20220307
  Receipt Date: 20220307
  Transmission Date: 20220423
  Serious: Yes (Other)
  Sender: FDA-Public Use
  Company Number: HK-JNJFOC-20220257897

PATIENT
  Sex: Female

DRUGS (2)
  1. ESKETAMINE [Suspect]
     Active Substance: ESKETAMINE
     Indication: Product used for unknown indication
  2. ESKETAMINE [Suspect]
     Active Substance: ESKETAMINE
     Dates: start: 202111

REACTIONS (4)
  - Asthma [Recovered/Resolved]
  - Blood pressure decreased [Unknown]
  - Dissociation [Recovered/Resolved]
  - Dysgeusia [Unknown]

NARRATIVE: CASE EVENT DATE: 20211101
